FAERS Safety Report 6699041-3 (Version None)
Quarter: 2010Q2

REPORT INFORMATION
  Report Type: 
  Country: None (occurrence: None)
  Receive Date: 20100427
  Receipt Date: 20100406
  Transmission Date: 20101027
  Serious: No
  Sender: FDA-Public Use
  Company Number: US-B.I. PHARMACEUTICALS,INC./RIDGEFIELD-2005-BP-16543BP

PATIENT
  Sex: Female

DRUGS (8)
  1. SPIRIVA [Suspect]
     Indication: CHRONIC OBSTRUCTIVE PULMONARY DISEASE
     Dosage: 18 MCG
     Route: 055
     Dates: start: 20050719
  2. SPIRIVA [Suspect]
     Indication: LUNG DISORDER
     Dosage: 18 MCG
     Route: 055
     Dates: start: 20080101, end: 20100315
  3. SPIRIVA [Suspect]
     Dosage: 36 MCG
     Route: 055
     Dates: start: 20100317
  4. THYROID MEDICINE [Concomitant]
  5. PRILOSEC [Concomitant]
  6. LIPITOR [Concomitant]
  7. AVALIDE [Concomitant]
     Indication: HYPERTENSION
     Route: 048
  8. SYNTHROID [Concomitant]
     Indication: HYPOTHYROIDISM
     Route: 048

REACTIONS (5)
  - DRUG INEFFECTIVE [None]
  - DYSPNOEA [None]
  - HEART RATE INCREASED [None]
  - SOMNOLENCE [None]
  - VISION BLURRED [None]
